FAERS Safety Report 5934638-7 (Version None)
Quarter: 2008Q4

REPORT INFORMATION
  Report Type: 
  Country: None (occurrence: None)
  Receive Date: 20081029
  Receipt Date: 20081021
  Transmission Date: 20090506
  Serious: Yes (Other)
  Sender: FDA-Public Use
  Company Number: CZ-PFIZER INC-2008088713

PATIENT
  Age: 39 Year
  Sex: Female

DRUGS (2)
  1. XALATAN [Suspect]
     Indication: GLAUCOMA
  2. AZOPT [Suspect]
     Indication: GLAUCOMA

REACTIONS (2)
  - INTRAOCULAR PRESSURE INCREASED [None]
  - SCLERAL DISORDER [None]
